FAERS Safety Report 6928055-0 (Version None)
Quarter: 2010Q3

REPORT INFORMATION
  Report Type: 
  Country: None (occurrence: None)
  Receive Date: 20100812
  Receipt Date: 20100728
  Transmission Date: 20110219
  Serious: Yes (Hospitalization, Other)
  Sender: FDA-Public Use
  Company Number: 010373

PATIENT
  Sex: Female
  Weight: 88.9 kg

DRUGS (11)
  1. LACOSAMIDE [Suspect]
     Indication: CONVULSION
     Dosage: (250 MG BID ORAL)
     Route: 048
     Dates: start: 20090917
  2. LACOSAMIDE [Suspect]
     Indication: EPILEPSY
     Dosage: (250 MG BID ORAL)
     Route: 048
     Dates: start: 20090917
  3. FOLIC ACID [Concomitant]
  4. OMEPRAZOLE [Concomitant]
  5. TYLENOL W/ CODEINE [Concomitant]
  6. CHILDREN'S TYLENOL COLD +   FLU [Concomitant]
  7. MOTRIN [Concomitant]
  8. CELEXA [Concomitant]
  9. TUMS /00193601/ [Concomitant]
  10. LAMICTAL [Concomitant]
  11. ROBITUSSIN DM /00288801/ [Concomitant]

REACTIONS (12)
  - ANGER [None]
  - BALANCE DISORDER [None]
  - DEPRESSION [None]
  - FALL [None]
  - GRAND MAL CONVULSION [None]
  - HEADACHE [None]
  - MEMORY IMPAIRMENT [None]
  - PHOTOPHOBIA [None]
  - SLEEP DISORDER [None]
  - SPEECH DISORDER [None]
  - STATUS EPILEPTICUS [None]
  - STRESS [None]
